FAERS Safety Report 7233681-8 (Version None)
Quarter: 2011Q1

REPORT INFORMATION
  Report Type: 
  Country: None (occurrence: None)
  Receive Date: 20110119
  Receipt Date: 20110110
  Transmission Date: 20110831
  Serious: Yes (Other)
  Sender: FDA-Public Use
  Company Number: US-ASTRAZENECA-2010SE56655

PATIENT
  Age: 73 Year
  Sex: Female

DRUGS (3)
  1. PEPCID [Concomitant]
  2. NEXIUM [Suspect]
     Dosage: TWICE A DAY
     Route: 048
  3. ZANTAC [Concomitant]

REACTIONS (5)
  - NAUSEA [None]
  - DRUG DOSE OMISSION [None]
  - RECTAL HAEMORRHAGE [None]
  - MALAISE [None]
  - DRUG INEFFECTIVE [None]
